FAERS Safety Report 26080347 (Version 1)
Quarter: 2025Q4

REPORT INFORMATION
  Report Type: Spontaneous
  Country: US (occurrence: US)
  Receive Date: 20251124
  Receipt Date: 20251124
  Transmission Date: 20260117
  Serious: No
  Sender: PRINSTON PHARMACEUTICAL
  Company Number: US-PRINSTON PHARMACEUTICAL INC.-2025PRN00273

PATIENT
  Age: 40 Year
  Sex: Male
  Weight: 88.889 kg

DRUGS (2)
  1. METHOCARBAMOL [Suspect]
     Active Substance: METHOCARBAMOL
     Dosage: UNK
  2. OGSIVEO [Suspect]
     Active Substance: NIROGACESTAT HYDROBROMIDE
     Dosage: 150 MG, 2X/DAY
     Route: 048
     Dates: end: 20250731

REACTIONS (8)
  - Presyncope [Unknown]
  - Epistaxis [Unknown]
  - Gastrointestinal infection [Unknown]
  - Weight decreased [Unknown]
  - Neoplasm progression [Unknown]
  - Fatigue [Unknown]
  - Weight increased [Unknown]
  - Dizziness [Unknown]
